FAERS Safety Report 8668678 (Version 2)
Quarter: 2013Q3

REPORT INFORMATION
  Report Type: Report from Study
  Country: CA (occurrence: CA)
  Receive Date: 20120717
  Receipt Date: 20130726
  Transmission Date: 20140515
  Serious: Yes (Other)
  Sender: FDA-Public Use
  Company Number: CA-ELI_LILLY_AND_COMPANY-CA201207003035

PATIENT
  Age: 65 Year
  Sex: Female

DRUGS (21)
  1. TERIPARATIDE [Suspect]
     Indication: OSTEOPOROSIS
     Dosage: 20 UG, QD
     Route: 058
     Dates: start: 20110625
  2. DILAUDID [Concomitant]
  3. FENTANYL [Concomitant]
  4. ESTROGEN [Concomitant]
  5. PROGESTERONE [Concomitant]
  6. PREVACID [Concomitant]
  7. CYMBALTA [Concomitant]
  8. PREDNISONE [Concomitant]
  9. ZOFRAN [Concomitant]
  10. VALTREX [Concomitant]
  11. DOMPERIDONE [Concomitant]
  12. IMODIUM [Concomitant]
  13. IMIPRAMINE [Concomitant]
  14. HUMIRA [Concomitant]
  15. METHOTREXATE [Concomitant]
  16. ASPIRIN [Concomitant]
  17. VITAMIN B12 [Concomitant]
  18. FOLIC ACID [Concomitant]
  19. MULTI-VIT [Concomitant]
  20. VITAMIN D [Concomitant]
  21. ZINC [Concomitant]

REACTIONS (2)
  - Ankle fracture [Recovered/Resolved]
  - Fall [Recovered/Resolved]
